FAERS Safety Report 5385726-8 (Version None)
Quarter: 2007Q3

REPORT INFORMATION
  Report Type: 
  Country: None (occurrence: None)
  Receive Date: 20070712
  Receipt Date: 20070704
  Transmission Date: 20080115
  Serious: Yes (Other)
  Sender: FDA-Public Use
  Company Number: FR-PFIZER INC-2007041284

PATIENT
  Sex: Female
  Weight: 53 kg

DRUGS (1)
  1. CHAMPIX [Suspect]
     Indication: SMOKING CESSATION THERAPY
     Route: 048
     Dates: start: 20070528, end: 20070603

REACTIONS (11)
  - DEPRESSED LEVEL OF CONSCIOUSNESS [None]
  - EUPHORIC MOOD [None]
  - EYE PAIN [None]
  - FATIGUE [None]
  - FEELING ABNORMAL [None]
  - FEELING DRUNK [None]
  - HEADACHE [None]
  - INAPPROPRIATE AFFECT [None]
  - MUSCLE TIGHTNESS [None]
  - NUCHAL RIGIDITY [None]
  - PAIN IN JAW [None]
